FAERS Safety Report 16533974 (Version 1)
Quarter: 2020Q3

REPORT INFORMATION
  Report Type: Spontaneous
  Country: GB (occurrence: GB)
  Receive Date: 20190705
  Receipt Date: 20190705
  Transmission Date: 20201104
  Serious: Yes (Other)
  Sender: FDA-Public Use
  Company Number: GB-ASTRAZENECA-2019SE95861

PATIENT
  Age: 77 Year
  Sex: Male
  Weight: 71.7 kg

DRUGS (12)
  1. OMEPRAZOLE. [Suspect]
     Active Substance: OMEPRAZOLE
     Indication: GASTRIC ULCER
     Route: 048
     Dates: start: 200510
  2. IBANDRONIC ACID. [Suspect]
     Active Substance: IBANDRONIC ACID
     Route: 048
     Dates: start: 20170107
  3. LEVOTHYROXINE. [Suspect]
     Active Substance: LEVOTHYROXINE
     Indication: HYPOTHYROIDISM
     Route: 065
  4. SPIRIVA [Suspect]
     Active Substance: TIOTROPIUM BROMIDE MONOHYDRATE
     Indication: CHRONIC OBSTRUCTIVE PULMONARY DISEASE
     Dosage: 18UG/INHAL DAILY
     Route: 055
     Dates: start: 2008
  5. VENTOLIN [Suspect]
     Active Substance: ALBUTEROL SULFATE
     Indication: CHRONIC OBSTRUCTIVE PULMONARY DISEASE
     Dosage: 100.0UG/INHAL AS REQUIRED
     Route: 051
     Dates: start: 2003
  6. CANDESARTAN. [Suspect]
     Active Substance: CANDESARTAN
     Route: 048
     Dates: start: 2005
  7. GLYCERYL TRINITRATE [Suspect]
     Active Substance: NITROGLYCERIN
     Indication: ANGINA PECTORIS
     Dosage: 400.0UG/INHAL UNKNOWN
     Route: 055
     Dates: start: 201904
  8. ATIMOS MODULITE [Suspect]
     Active Substance: FORMOTEROL FUMARATE
     Indication: CHRONIC OBSTRUCTIVE PULMONARY DISEASE
     Dosage: 12.0UG/INHAL UNKNOWN
     Route: 055
     Dates: start: 201809
  9. LEVOTHYROXINE. [Suspect]
     Active Substance: LEVOTHYROXINE
     Indication: HYPOTHYROIDISM
     Dosage: 25 MCG AND 50 MCG DAILY
     Route: 048
     Dates: start: 2009
  10. WARFARIN [Suspect]
     Active Substance: WARFARIN
     Indication: ATRIAL FIBRILLATION
     Dosage: 3 MG OR 4 MG DAILY
     Route: 048
     Dates: start: 2010
  11. BETAHISTINE [Suspect]
     Active Substance: BETAHISTINE
     Indication: EAR DISORDER
     Dosage: 16.0MG UNKNOWN
     Route: 048
     Dates: start: 2006
  12. ADCAL?D3 [Suspect]
     Active Substance: CALCIUM CARBONATE\CHOLECALCIFEROL
     Route: 048
     Dates: start: 20170107

REACTIONS (2)
  - Frequent bowel movements [Unknown]
  - Haematochezia [Unknown]
